FAERS Safety Report 10262639 (Version 2)
Quarter: 2014Q2

REPORT INFORMATION
  Report Type: Report from Study
  Country: US (occurrence: US)
  Receive Date: 20140626
  Receipt Date: 20140626
  Transmission Date: 20141212
  Serious: Yes (Other)
  Sender: FDA-Public Use
  Company Number: US-MYLANLABS-2013S1009801

PATIENT
  Age: 44 Year
  Sex: Male
  Weight: 86.18 kg

DRUGS (9)
  1. CLOZAPINE TABLETS [Suspect]
     Indication: SCHIZOPHRENIA, PARANOID TYPE
     Route: 048
     Dates: start: 2006, end: 20130502
  2. CLOZAPINE TABLETS [Suspect]
     Indication: SCHIZOPHRENIA, PARANOID TYPE
     Dates: start: 20130507, end: 20130509
  3. COGENTIN [Concomitant]
     Indication: TREMOR
     Dosage: INDICATED FOR TREMOR AND AKATHISIA
     Route: 048
  4. CITALOPRAM [Concomitant]
     Indication: SOCIAL PHOBIA
     Route: 048
  5. ALPRAZOLAM [Concomitant]
     Indication: ANXIETY
     Dosage: BID PRN
     Route: 048
  6. ALPRAZOLAM [Concomitant]
     Dosage: BID PRN
     Route: 048
  7. PRAVASTATIN [Concomitant]
  8. ADVAIR [Concomitant]
  9. MIRALAX /00754501/ [Concomitant]

REACTIONS (2)
  - Granulocytopenia [Not Recovered/Not Resolved]
  - Leukopenia [Recovered/Resolved]
